FAERS Safety Report 20135474 (Version 1)
Quarter: 2021Q4

REPORT INFORMATION
  Report Type: Spontaneous
  Country: US (occurrence: None)
  Receive Date: 20211201
  Receipt Date: 20211201
  Transmission Date: 20220303
  Serious: Yes (Life-Threatening)
  Sender: FDA-Public Use
  Company Number: None

PATIENT
  Age: 73 Year
  Sex: Male
  Weight: 90 kg

DRUGS (2)
  1. ADENOSINE [Suspect]
     Active Substance: ADENOSINE
     Indication: Cardiovascular disorder
     Dates: start: 20211110, end: 20211110
  2. ADENOSINE [Suspect]
     Active Substance: ADENOSINE
     Indication: Surgery

REACTIONS (5)
  - Atrioventricular block complete [None]
  - Supraventricular tachycardia [None]
  - Ventricular extrasystoles [None]
  - Sinus tachycardia [None]
  - Palpitations [None]

NARRATIVE: CASE EVENT DATE: 20211110
